FAERS Safety Report 20642002 (Version 1)
Quarter: 2022Q1

REPORT INFORMATION
  Report Type: Spontaneous
  Country: JP (occurrence: JP)
  Receive Date: 20220328
  Receipt Date: 20220328
  Transmission Date: 20220424
  Serious: Yes (Hospitalization, Other)
  Sender: FDA-Public Use
  Company Number: JP-SUN PHARMACEUTICAL INDUSTRIES LTD-2022RR-330721

PATIENT
  Age: 62 Year
  Sex: Female

DRUGS (6)
  1. ACYCLOVIR [Suspect]
     Active Substance: ACYCLOVIR
     Indication: Ischaemic stroke
     Dosage: 10 MILLIGRAM/KILOGRAM, TID
     Route: 042
  2. ASPIRIN [Suspect]
     Active Substance: ASPIRIN
     Indication: Ischaemic stroke
     Dosage: 100 MILLIGRAM, DAILY
     Route: 048
  3. ASPIRIN [Suspect]
     Active Substance: ASPIRIN
     Dosage: 200 MILLIGRAM, DAILY
     Route: 048
  4. ROSUVASTATIN [Suspect]
     Active Substance: ROSUVASTATIN
     Indication: Ischaemic stroke
     Dosage: 2.5 MILLIGRAM, DAILY
     Route: 065
  5. PREDNISONE [Suspect]
     Active Substance: PREDNISONE
     Indication: Ischaemic stroke
     Dosage: 1 MILLIGRAM/KILOGRAM, FOR 5 DAYS
     Route: 048
  6. METHYLPREDNISOLONE [Concomitant]
     Active Substance: METHYLPREDNISOLONE
     Indication: Ischaemic stroke
     Dosage: 1000 MILLIGRAM, DAILY
     Route: 042

REACTIONS (1)
  - Disease recurrence [Unknown]
